FAERS Safety Report 10206562 (Version 1)
Quarter: 2014Q2

REPORT INFORMATION
  Report Type: Spontaneous
  Country: US (occurrence: US)
  Receive Date: 20140530
  Receipt Date: 20140530
  Transmission Date: 20141212
  Serious: No
  Sender: FDA-Public Use
  Company Number: US-GLAXOSMITHKLINE-A1036651A

PATIENT
  Age: 65 Year
  Sex: Male

DRUGS (1)
  1. FLOLAN [Suspect]
     Indication: PULMONARY ARTERIAL HYPERTENSION
     Dosage: 14.09NGKM CONTINUOUS
     Route: 042
     Dates: start: 20130624

REACTIONS (1)
  - Gastrointestinal infection [Unknown]
